FAERS Safety Report 7518023-2 (Version None)
Quarter: 2011Q2

REPORT INFORMATION
  Report Type: 
  Country: None (occurrence: None)
  Receive Date: 20110602
  Receipt Date: 20110523
  Transmission Date: 20111010
  Serious: Yes (Hospitalization)
  Sender: FDA-Public Use
  Company Number: FR-JNJFOC-20110511105

PATIENT
  Age: 43 Year
  Sex: Female

DRUGS (3)
  1. LEVOFLOXACIN [Suspect]
     Indication: URINARY TRACT INFECTION
     Route: 048
     Dates: start: 20101101, end: 20101101
  2. PREVISCAN (FLUINDIONE) [Interacting]
     Indication: PRODUCT USED FOR UNKNOWN INDICATION
     Route: 048
  3. CEFTRIAXONE [Interacting]
     Indication: PRODUCT USED FOR UNKNOWN INDICATION
     Route: 065

REACTIONS (5)
  - INTERNATIONAL NORMALISED RATIO INCREASED [None]
  - BACK PAIN [None]
  - HAEMATURIA [None]
  - DRUG INTERACTION [None]
  - ANAEMIA [None]
